FAERS Safety Report 5102426-X (Version None)
Quarter: 2006Q3

REPORT INFORMATION
  Report Type: 
  Country: None (occurrence: None)
  Receive Date: 20060907
  Receipt Date: 20060828
  Transmission Date: 20061208
  Serious: Yes (Life-Threatening)
  Sender: FDA-Public Use
  Company Number: 2006104845

PATIENT
  Sex: Male

DRUGS (1)
  1. SERTRALINE [Suspect]
     Indication: DRUG USE FOR UNKNOWN INDICATION
     Dosage: 50 MG (50 MG, 1 IN 1 D)
     Dates: start: 20060801, end: 20060811

REACTIONS (5)
  - CIRCULATORY FAILURE NEONATAL [None]
  - CYANOSIS NEONATAL [None]
  - DRUG EXPOSURE DURING PREGNANCY [None]
  - NEONATAL DISORDER [None]
  - PULMONARY HYPERTENSION [None]
